FAERS Safety Report 9206700 (Version 2)
Quarter: 2014Q1

REPORT INFORMATION
  Report Type: Spontaneous
  Country: US (occurrence: US)
  Receive Date: 20130403
  Receipt Date: 20140123
  Transmission Date: 20141002
  Serious: Yes (Other)
  Sender: FDA-Public Use
  Company Number: US-BAYER-2013-040680

PATIENT
  Age: 37 Year
  Sex: Female

DRUGS (4)
  1. YASMIN [Suspect]
     Dosage: UNK
     Dates: start: 2010
  2. FEXOFENADINE [Concomitant]
     Dosage: UNK
     Dates: start: 20110215
  3. ALLEGRA [Concomitant]
     Dosage: UNK
     Dates: start: 20110310
  4. MVI [Concomitant]
     Dosage: UNK
     Dates: start: 20110310

REACTIONS (2)
  - Cholecystectomy [None]
  - Cholecystitis chronic [None]
